FAERS Safety Report 11511229 (Version 1)
Quarter: 2015Q3

REPORT INFORMATION
  Report Type: Spontaneous
  Country: DE (occurrence: DE)
  Receive Date: 20150915
  Receipt Date: 20150915
  Transmission Date: 20151125
  Serious: Yes (Hospitalization)
  Sender: FDA-Public Use
  Company Number: DE-SA-2015SA117105

PATIENT
  Age: 29 Year
  Sex: Female
  Weight: 76.5 kg

DRUGS (4)
  1. HUMALOG [Concomitant]
     Active Substance: INSULIN LISPRO
     Indication: TYPE 1 DIABETES MELLITUS
     Dosage: DOSE: 1.5-1.25-1.5?FREQUENCY: THREE TIMES (AS NEEDED)/ DAY
     Route: 058
  2. LEVEMIR [Concomitant]
     Active Substance: INSULIN DETEMIR
     Indication: TYPE 1 DIABETES MELLITUS
     Dosage: DOSE: 9-0-0-11 U
  3. TOUJEO [Suspect]
     Active Substance: INSULIN GLARGINE
     Indication: TYPE 1 DIABETES MELLITUS
     Route: 058
     Dates: start: 20150730, end: 20150809
  4. SOLOSTAR [Concomitant]
     Active Substance: DEVICE
     Indication: TYPE 1 DIABETES MELLITUS
     Dates: start: 20150730, end: 20150809

REACTIONS (6)
  - Blood glucose increased [Unknown]
  - Nausea [Unknown]
  - Drug ineffective [Unknown]
  - Ketoacidosis [Recovered/Resolved]
  - Malaise [Unknown]
  - Blood ketone body [Unknown]

NARRATIVE: CASE EVENT DATE: 20150731
